FAERS Safety Report 9657936 (Version 1)
Quarter: 2013Q4

REPORT INFORMATION
  Report Type: Spontaneous
  Country: US (occurrence: None)
  Receive Date: 20131029
  Receipt Date: 20131029
  Transmission Date: 20140711
  Serious: Yes (Hospitalization, Other)
  Sender: FDA-Public Use
  Company Number: ADR-2013-01950

PATIENT
  Sex: 0

DRUGS (2)
  1. LIORESAL [Suspect]
     Dosage: 600 MCG/DAY
  2. LIORESAL (BACLOFEN) [Concomitant]

REACTIONS (2)
  - Sinusitis [None]
  - Cerebrospinal fluid leakage [None]
